FAERS Safety Report 18792588 (Version 1)
Quarter: 2021Q1

REPORT INFORMATION
  Report Type: Spontaneous
  Country: US (occurrence: US)
  Receive Date: 20210127
  Receipt Date: 20210127
  Transmission Date: 20210419
  Serious: No
  Sender: FDA-Public Use
  Company Number: US-SA-2021SA024482

PATIENT
  Age: 31 Year
  Sex: Male

DRUGS (2)
  1. ALPROLIX [Suspect]
     Active Substance: EFTRENONACOG ALFA
     Indication: BLOOD DISORDER
     Dosage: 6000 IU, PRN
     Dates: start: 20141201
  2. ALPROLIX [Suspect]
     Active Substance: EFTRENONACOG ALFA
     Indication: BLOOD DISORDER
     Dosage: 6000 IU, PRN
     Dates: start: 20141201

REACTIONS (3)
  - Eyelid disorder [Unknown]
  - Unevaluable event [Unknown]
  - Asthenia [Unknown]

NARRATIVE: CASE EVENT DATE: 20210115
